FAERS Safety Report 10610704 (Version 2)
Quarter: 2015Q2

REPORT INFORMATION
  Report Type: Spontaneous
  Country: US (occurrence: US)
  Receive Date: 20141126
  Receipt Date: 20150529
  Transmission Date: 20150821
  Serious: Yes (Life-Threatening, Hospitalization, Disabling, Other)
  Sender: FDA-Public Use
  Company Number: US-BAYER-2014-171827

PATIENT
  Age: 38 Year
  Sex: Female
  Weight: 90.7 kg

DRUGS (6)
  1. MIRENA [Suspect]
     Active Substance: LEVONORGESTREL
     Dosage: 20 MCG/24HR, CONT
     Route: 015
     Dates: start: 20120130, end: 20131218
  2. XANAX [Concomitant]
     Active Substance: ALPRAZOLAM
  3. LISINOPRIL. [Concomitant]
     Active Substance: LISINOPRIL
  4. VENLAFAXINE [Concomitant]
     Active Substance: VENLAFAXINE HYDROCHLORIDE
     Indication: DEPRESSION
  5. ATENOLOL. [Concomitant]
     Active Substance: ATENOLOL
  6. DOXYCYCLINE. [Concomitant]
     Active Substance: DOXYCYCLINE

REACTIONS (14)
  - Emotional distress [None]
  - Device issue [None]
  - Balance disorder [None]
  - Complication of device removal [None]
  - Abdominal pain lower [None]
  - Anhedonia [None]
  - Device breakage [None]
  - Injury [None]
  - Pelvic pain [None]
  - Back pain [None]
  - Uterine perforation [None]
  - General physical health deterioration [None]
  - Suicidal ideation [None]
  - Anxiety [None]

NARRATIVE: CASE EVENT DATE: 2013
